FAERS Safety Report 25172290 (Version 1)
Quarter: 2025Q2

REPORT INFORMATION
  Report Type: Spontaneous
  Country: US (occurrence: US)
  Receive Date: 20250408
  Receipt Date: 20250408
  Transmission Date: 20250716
  Serious: No
  Sender: ADVANZ PHARMA
  Company Number: US-MLMSERVICE-20250224-PI429064-00095-1

PATIENT

DRUGS (3)
  1. HYDROXYCHLOROQUINE [Suspect]
     Active Substance: HYDROXYCHLOROQUINE
     Indication: Lichen planopilaris
     Route: 048
  2. CLOBETASOL [Concomitant]
     Active Substance: CLOBETASOL
     Indication: Lichen planopilaris
  3. KENALOG [Concomitant]
     Active Substance: TRIAMCINOLONE ACETONIDE
     Indication: Lichen planopilaris

REACTIONS (4)
  - Skin discolouration [Recovering/Resolving]
  - Skin hyperpigmentation [Recovering/Resolving]
  - Rash [Recovering/Resolving]
  - Macule [Recovering/Resolving]
